FAERS Safety Report 8452492-9 (Version None)
Quarter: 2012Q2

REPORT INFORMATION
  Report Type: 
  Country: None (occurrence: None)
  Receive Date: 20120620
  Receipt Date: 20120612
  Transmission Date: 20120825
  Serious: Yes (Other)
  Sender: FDA-Public Use
  Company Number: PHHY2012BR038891

PATIENT
  Sex: Female

DRUGS (1)
  1. AMLODIPINE [Suspect]
     Dosage: 1 DF (160/5 MG), UNK

REACTIONS (4)
  - PAIN [None]
  - NECK PAIN [None]
  - ANGINA PECTORIS [None]
  - HYPERTENSION [None]
